FAERS Safety Report 5916561-7 (Version None)
Quarter: 2008Q4

REPORT INFORMATION
  Report Type: 
  Country: None (occurrence: None)
  Receive Date: 20081013
  Receipt Date: 20081008
  Transmission Date: 20090506
  Serious: Yes (Hospitalization, Other)
  Sender: FDA-Public Use
  Company Number: FR-BRISTOL-MYERS SQUIBB COMPANY-14307953

PATIENT
  Age: 58 Year
  Sex: Male
  Weight: 49 kg

DRUGS (6)
  1. REYATAZ [Suspect]
     Indication: HIV INFECTION
     Dosage: 150 MG FROM OCT-2004 TO APR-2006, THEN 200 MG
     Dates: start: 20041001, end: 20080818
  2. NORVIR [Concomitant]
     Route: 048
  3. EPIVIR [Concomitant]
  4. VIREAD [Concomitant]
     Route: 048
  5. TERCIAN [Concomitant]
  6. MEPRONIZINE [Concomitant]

REACTIONS (5)
  - DIARRHOEA [None]
  - HYDRONEPHROSIS [None]
  - INFLAMMATION [None]
  - PYREXIA [None]
  - RENAL FAILURE ACUTE [None]
